FAERS Safety Report 6839731-2 (Version None)
Quarter: 2010Q3

REPORT INFORMATION
  Report Type: 
  Country: None (occurrence: None)
  Receive Date: 20100714
  Receipt Date: 20100706
  Transmission Date: 20110219
  Serious: Yes (Hospitalization)
  Sender: FDA-Public Use
  Company Number: US-ASTRAZENECA-2010SE31270

PATIENT
  Age: 66 Year
  Sex: Male

DRUGS (7)
  1. CRESTOR [Suspect]
     Indication: BLOOD CHOLESTEROL INCREASED
     Route: 048
     Dates: start: 20091001
  2. ASPIRIN [Concomitant]
     Dosage: DAILY
  3. PLAVIX [Concomitant]
     Dosage: AT NIGHT
  4. PEPCID [Concomitant]
  5. WARFARIN [Concomitant]
  6. CARDAVIL [Concomitant]
     Dosage: TWO TIMES A DAY
  7. BENAZEPRIL HYDROCHLORIDE [Concomitant]
     Dosage: TWO TIMES A DAY

REACTIONS (2)
  - CATHETERISATION CARDIAC [None]
  - STENT PLACEMENT [None]
